FAERS Safety Report 22260014 (Version 1)
Quarter: 2023Q2

REPORT INFORMATION
  Report Type: Spontaneous
  Country: US (occurrence: US)
  Receive Date: 20230427
  Receipt Date: 20230427
  Transmission Date: 20230722
  Serious: Yes (Hospitalization)
  Sender: FDA-Public Use
  Company Number: US-ELI_LILLY_AND_COMPANY-US202304010034

PATIENT
  Age: 53 Year
  Sex: Female
  Weight: 85.3 kg

DRUGS (15)
  1. MOUNJARO [Suspect]
     Active Substance: TIRZEPATIDE
     Indication: Product used for unknown indication
     Dosage: UNK, UNKNOWN
     Route: 065
  2. KORLYM [Suspect]
     Active Substance: MIFEPRISTONE
     Indication: Product used for unknown indication
     Dosage: 600 MG, DAILY
     Route: 048
     Dates: start: 20230107, end: 202302
  3. KORLYM [Suspect]
     Active Substance: MIFEPRISTONE
     Dosage: 600 MG, DAILY
     Route: 048
     Dates: start: 20230213
  4. KORLYM [Suspect]
     Active Substance: MIFEPRISTONE
     Dosage: 300 MG, DAILY
     Route: 048
     Dates: start: 20230317
  5. OZEMPIC [Suspect]
     Active Substance: SEMAGLUTIDE
     Indication: Product used for unknown indication
     Dosage: UNK, UNKNOWN
     Route: 065
  6. PIOGLITAZONE [Concomitant]
     Active Substance: PIOGLITAZONE
     Indication: Product used for unknown indication
  7. HYDROCHLOROTHIAZIDE [Concomitant]
     Active Substance: HYDROCHLOROTHIAZIDE
     Indication: Product used for unknown indication
  8. ASPIRIN [Concomitant]
     Active Substance: ASPIRIN
     Indication: Product used for unknown indication
  9. ROSUVASTATIN [Concomitant]
     Active Substance: ROSUVASTATIN
     Indication: Product used for unknown indication
  10. CHOLECALCIFEROL [Concomitant]
     Active Substance: CHOLECALCIFEROL
     Indication: Product used for unknown indication
  11. TOUJEO [Concomitant]
     Active Substance: INSULIN GLARGINE
     Indication: Product used for unknown indication
  12. SYNJARDY [Concomitant]
     Active Substance: EMPAGLIFLOZIN\METFORMIN HYDROCHLORIDE
     Indication: Product used for unknown indication
  13. AMLODIPINE [Concomitant]
     Active Substance: AMLODIPINE BESYLATE
     Indication: Product used for unknown indication
  14. TRAZODONE [Concomitant]
     Active Substance: TRAZODONE HYDROCHLORIDE
     Indication: Product used for unknown indication
  15. LOSARTAN [Concomitant]
     Active Substance: LOSARTAN
     Indication: Product used for unknown indication

REACTIONS (12)
  - Pain [Not Recovered/Not Resolved]
  - Dyspnoea [Unknown]
  - Blood potassium decreased [Recovered/Resolved]
  - Blood potassium increased [Unknown]
  - Asthenia [Recovering/Resolving]
  - Vomiting [Unknown]
  - Nausea [Unknown]
  - Blood glucose increased [Unknown]
  - Hypophagia [Unknown]
  - Emotional disorder [Recovering/Resolving]
  - Blood glucose decreased [Recovered/Resolved]
  - Decreased appetite [Unknown]

NARRATIVE: CASE EVENT DATE: 20230101
